FAERS Safety Report 17146828 (Version 1)
Quarter: 2019Q4

REPORT INFORMATION
  Report Type: Spontaneous
  Country: US (occurrence: US)
  Receive Date: 20191212
  Receipt Date: 20191212
  Transmission Date: 20200122
  Serious: Yes (Hospitalization)
  Sender: FDA-Public Use
  Company Number: US-MYLANLABS-2019M1123784

PATIENT
  Age: 68 Year
  Sex: Male

DRUGS (2)
  1. DAUNORUBICIN [Suspect]
     Active Substance: DAUNORUBICIN
     Indication: ACUTE MYELOID LEUKAEMIA
     Route: 065
  2. CYTARABINE. [Suspect]
     Active Substance: CYTARABINE
     Indication: ACUTE MYELOID LEUKAEMIA
     Route: 065

REACTIONS (5)
  - Ecthyma [Recovered/Resolved]
  - Blood urea increased [Recovered/Resolved]
  - Pseudomonal sepsis [Recovered/Resolved]
  - Febrile neutropenia [Recovered/Resolved]
  - Metabolic acidosis [Recovered/Resolved]
